FAERS Safety Report 24034089 (Version 1)
Quarter: 2024Q3

REPORT INFORMATION
  Report Type: Other
  Country: US (occurrence: US)
  Receive Date: 20240701
  Receipt Date: 20240701
  Transmission Date: 20241016
  Serious: Yes (Death, Other)
  Sender: EMD SERONO INC
  Company Number: US-Merck Healthcare KGaA-2024033611

PATIENT
  Age: 24 Year
  Sex: Female

DRUGS (3)
  1. METFORMIN [Suspect]
     Active Substance: METFORMIN HYDROCHLORIDE
     Indication: Diabetes mellitus
  2. METFORMIN [Suspect]
     Active Substance: METFORMIN HYDROCHLORIDE
     Indication: Polycystic ovarian syndrome
  3. INSULIN NOS [Concomitant]
     Active Substance: INSULIN NOS
     Indication: Diabetes mellitus

REACTIONS (7)
  - Brain oedema [Fatal]
  - Brain herniation [Fatal]
  - Diabetic coma [Unknown]
  - Loss of consciousness [Unknown]
  - Premature delivery [Recovered/Resolved]
  - Metabolic acidosis [Unknown]
  - Maternal exposure during pregnancy [Recovered/Resolved]
